FAERS Safety Report 5536963-0 (Version None)
Quarter: 2007Q4

REPORT INFORMATION
  Report Type: 
  Country: None (occurrence: None)
  Receive Date: 20071207
  Receipt Date: 20071126
  Transmission Date: 20080405
  Serious: Yes (Hospitalization, Disabling)
  Sender: FDA-Public Use
  Company Number: FR-BAYER-FR-2007-043387

PATIENT
  Age: 49 Year
  Sex: Male
  Weight: 90 kg

DRUGS (1)
  1. ULTRAVIST 300 [Suspect]
     Indication: COMPUTERISED TOMOGRAM
     Dosage: UNIT DOSE: 100 ML
     Route: 042
     Dates: start: 20071115, end: 20071115

REACTIONS (3)
  - DERMATITIS ALLERGIC [None]
  - DYSPNOEA [None]
  - HYPOTENSION [None]
